FAERS Safety Report 9276204 (Version 1)
Quarter: 2012Q4

REPORT INFORMATION
  Report Type: Spontaneous
  Country: GB (occurrence: None)
  Receive Date: 20121109
  Receipt Date: 20121109
  Transmission Date: 20130627
  Serious: Yes (Death)
  Sender: FDA-Public Use
  Company Number: 2012S100093

PATIENT
  Age: 67 Year
  Sex: Male

DRUGS (7)
  1. CUBICIN [Suspect]
     Indication: ENDOCARDITIS
  2. CUBICIN [Suspect]
     Indication: NEPHROTOXICITY
  3. VANCOMYCIN [Concomitant]
  4. RIFAMPICIN [Concomitant]
  5. TERLIPRESSIN [Concomitant]
  6. HUMANALBUMIN [Concomitant]
  7. LACTULOSE [Concomitant]

REACTIONS (1)
  - Death [None]
